FAERS Safety Report 7633472-X (Version None)
Quarter: 2011Q3

REPORT INFORMATION
  Report Type: 
  Country: None (occurrence: None)
  Receive Date: 20110725
  Receipt Date: 20110412
  Transmission Date: 20111222
  Serious: No
  Sender: FDA-Public Use
  Company Number: US-BRISTOL-MYERS SQUIBB COMPANY-15647126

PATIENT
  Age: 67 Year
  Sex: Male
  Weight: 112 kg

DRUGS (4)
  1. ASPIRIN [Concomitant]
  2. SIMVASTATIN [Concomitant]
     Indication: BLOOD CHOLESTEROL
  3. SPRYCEL [Suspect]
     Indication: CHRONIC MYELOID LEUKAEMIA
     Dosage: THEARPY FROM 22-29MAR2011.
     Dates: start: 20110208
  4. LISINOPRIL [Concomitant]
     Indication: BLOOD PRESSURE

REACTIONS (1)
  - HAEMOGLOBIN DECREASED [None]
